FAERS Safety Report 6926458 (Version 1)
Quarter: 2020Q3

REPORT INFORMATION
  Report Type: Report from Study
  Country: US (occurrence: US)
  Receive Date: 20090304
  Receipt Date: 20090304
  Transmission Date: 20201105
  Serious: Yes (Hospitalization)
  Sender: FDA-Public Use
  Company Number: US-ROCHE-616119

PATIENT
  Age: 73 Year
  Sex: Female

DRUGS (4)
  1. ZETIA [Concomitant]
     Active Substance: EZETIMIBE
  2. IBANDRONIC ACID. [Suspect]
     Active Substance: IBANDRONIC ACID
     Indication: OSTEOPOROSIS
     Dosage: TOOK FOR YEARS.
     Route: 065
  3. CRESTOR [Concomitant]
     Active Substance: ROSUVASTATIN CALCIUM
  4. IBANDRONIC ACID. [Suspect]
     Active Substance: IBANDRONIC ACID
     Route: 065
     Dates: end: 200812

REACTIONS (5)
  - Dysphagia [Unknown]
  - Dry throat [Not Recovered/Not Resolved]
  - Hernia repair [Unknown]
  - Blood cholesterol abnormal [Unknown]
  - Bladder operation [Unknown]

NARRATIVE: CASE EVENT DATE: 20070101
